FAERS Safety Report 21880934 (Version 5)
Quarter: 2023Q2

REPORT INFORMATION
  Report Type: Report from Study
  Country: ES (occurrence: ES)
  Receive Date: 20230118
  Receipt Date: 20230609
  Transmission Date: 20230721
  Serious: Yes (Death, Hospitalization)
  Sender: FDA-Public Use
  Company Number: ES-JNJFOC-20230132228

PATIENT
  Age: 55 Year
  Sex: Female
  Weight: 50 kg

DRUGS (8)
  1. TRABECTEDIN [Suspect]
     Active Substance: TRABECTEDIN
     Indication: Uterine leiomyosarcoma
     Route: 042
     Dates: start: 20221219, end: 20221219
  2. LEVOTHYROXINE SODIUM [Concomitant]
     Active Substance: LEVOTHYROXINE SODIUM
  3. MINOXIDIL [Concomitant]
     Active Substance: MINOXIDIL
  4. IBUPROFEN [Concomitant]
     Active Substance: IBUPROFEN
  5. ONDANSETRON [Concomitant]
     Active Substance: ONDANSETRON
     Indication: Premedication
     Dates: start: 20221219
  6. DEXAMETHASONE [Concomitant]
     Active Substance: DEXAMETHASONE
     Indication: Premedication
     Dates: start: 20221219
  7. TORSEMIDE [Concomitant]
     Active Substance: TORSEMIDE
     Dates: start: 20230104
  8. PREDNISONE [Concomitant]
     Active Substance: PREDNISONE
     Dates: start: 20230104

REACTIONS (2)
  - Cardiac failure congestive [Fatal]
  - Influenza [Fatal]

NARRATIVE: CASE EVENT DATE: 20230104
